FAERS Safety Report 4893514-1 (Version None)
Quarter: 2006Q1

REPORT INFORMATION
  Report Type: 
  Country: None (occurrence: None)
  Receive Date: 20060127
  Receipt Date: 20060118
  Transmission Date: 20060701
  Serious: Yes (Hospitalization)
  Sender: FDA-Public Use
  Company Number: US-AVENTIS-200610826US

PATIENT
  Sex: Male

DRUGS (1)
  1. ALLEGRA [Suspect]
     Indication: SEASONAL ALLERGY
     Dosage: DOSE: UNK
     Route: 048
     Dates: start: 20050426

REACTIONS (5)
  - DISORIENTATION [None]
  - DRUG HYPERSENSITIVITY [None]
  - DYSPNOEA [None]
  - MYOCARDIAL INFARCTION [None]
  - TACHYCARDIA [None]
